FAERS Safety Report 8319901-7 (Version None)
Quarter: 2012Q2

REPORT INFORMATION
  Report Type: 
  Country: None (occurrence: None)
  Receive Date: 20120427
  Receipt Date: 20120419
  Transmission Date: 20120825
  Serious: Yes (Other)
  Sender: FDA-Public Use
  Company Number: GB-ABBOTT-12P-167-0928624-00

PATIENT
  Sex: Male

DRUGS (1)
  1. CREON [Suspect]
     Indication: PRODUCT USED FOR UNKNOWN INDICATION
     Dosage: 2 X 40,000 CAPS WITH MEALS, 25,000 CAP WITH SNACKS

REACTIONS (5)
  - PAIN [None]
  - WEIGHT DECREASED [None]
  - STEATORRHOEA [None]
  - MALIGNANT NEOPLASM OF AMPULLA OF VATER [None]
  - DIARRHOEA [None]
